FAERS Safety Report 7533225-7 (Version None)
Quarter: 2011Q2

REPORT INFORMATION
  Report Type: 
  Country: None (occurrence: None)
  Receive Date: 20110608
  Receipt Date: 20100116
  Transmission Date: 20111010
  Serious: Yes (Death, Other)
  Sender: FDA-Public Use
  Company Number: US-BAYER-201011164NA

PATIENT
  Age: 71 Year
  Sex: Male
  Weight: 118 kg

DRUGS (19)
  1. TRASYLOL [Suspect]
     Indication: CORONARY ARTERY BYPASS
     Dosage: 100 ML, ONCE, CARDIOPULMONARY BYPASS PRIME
     Route: 042
     Dates: start: 19950206, end: 19950206
  2. ELAVIL [Concomitant]
     Route: 048
  3. LOPRESSOR [Concomitant]
     Route: 048
  4. VERSED [Concomitant]
     Dosage: UNK
     Route: 042
     Dates: start: 19950206, end: 19950206
  5. PROTAMINE SULFATE [Concomitant]
     Dosage: 250 MG, UNK
     Route: 042
     Dates: start: 19950206, end: 19950206
  6. PAVULON [Concomitant]
     Dosage: UNK
     Route: 042
     Dates: start: 19950206, end: 19950206
  7. SUCCINYLCHOLINE CHLORIDE [Concomitant]
     Dosage: UNK
     Route: 042
     Dates: start: 19950206, end: 19950206
  8. CALCIUM CARBONATE [Concomitant]
     Dosage: UNK
     Route: 042
     Dates: start: 19950206, end: 19950206
  9. PENTOTHAL [Concomitant]
     Dosage: 250 MG, UNK
     Route: 042
     Dates: start: 19950206, end: 19950206
  10. SUFENTANIL CITRATE [Concomitant]
     Dosage: UNK
     Route: 042
     Dates: start: 19950206, end: 19950206
  11. NIPRIDE [Concomitant]
     Dosage: UNK
     Route: 042
     Dates: start: 19950206, end: 19950206
  12. VALIUM [Concomitant]
     Dosage: UNK
     Route: 042
     Dates: start: 19950206, end: 19950206
  13. OMNIPAQUE 140 [Concomitant]
     Dosage: 150 ML, UNK
     Dates: start: 19950130
  14. NITROGLYCERIN [Concomitant]
  15. DYAZIDE [Concomitant]
     Route: 048
  16. DOPAMINE HCL [Concomitant]
     Dosage: UNK
     Route: 042
     Dates: start: 19950206, end: 19950208
  17. FORANE [Concomitant]
     Dosage: UNK
     Dates: start: 19950206, end: 19950206
  18. TRASYLOL [Suspect]
     Indication: AORTIC VALVE REPLACEMENT
  19. HEPARIN [Concomitant]
     Dosage: UNK
     Route: 042
     Dates: start: 19950206, end: 19950206

REACTIONS (14)
  - PAIN [None]
  - INJURY [None]
  - CEREBROVASCULAR ACCIDENT [None]
  - RENAL FAILURE [None]
  - RENAL IMPAIRMENT [None]
  - DEATH [None]
  - CARDIAC DISORDER [None]
  - ANXIETY [None]
  - RENAL INJURY [None]
  - FEAR [None]
  - ANHEDONIA [None]
  - ORGAN FAILURE [None]
  - UNEVALUABLE EVENT [None]
  - DEPRESSION [None]
